FAERS Safety Report 5866842 (Version 3)
Quarter: 2016Q3

REPORT INFORMATION
  Report Type: Report from Study
  Country: JP (occurrence: JP)
  Receive Date: 20050825
  Receipt Date: 20160815
  Transmission Date: 20161109
  Serious: Yes (Hospitalization)
  Sender: FDA-Public Use
  Company Number: JP-NOVOPROD-246331

PATIENT
  Age: 12 Year
  Sex: Female
  Weight: 35 kg

DRUGS (1)
  1. NORDITROPIN NORDIFLEX CHU [Suspect]
     Active Substance: SOMATROPIN
     Indication: TURNER^S SYNDROME
     Dosage: 1.55 6 TIMES A WEEK
     Route: 058
     Dates: start: 20041102, end: 20050811

REACTIONS (1)
  - Optic neuritis [Recovering/Resolving]

NARRATIVE: CASE EVENT DATE: 20050807
